FAERS Safety Report 15704030 (Version 1)
Quarter: 2018Q4

REPORT INFORMATION
  Report Type: Report from Study
  Country: US (occurrence: US)
  Receive Date: 20181210
  Receipt Date: 20181210
  Transmission Date: 20190205
  Serious: Yes (Hospitalization)
  Sender: FDA-Public Use
  Company Number: US-ROCHE-2224442

PATIENT
  Age: 68 Year
  Sex: Male
  Weight: 96.8 kg

DRUGS (2)
  1. CABOZANTINIB [Suspect]
     Active Substance: CABOZANTINIB
     Indication: NEOPLASM
     Dosage: ON 23/NOV/2018, THE PATIENT RECEIVED THE MOST RECENT DOSE OF CABOZANTINIB
     Route: 048
     Dates: start: 20180723
  2. ATEZOLIZUMAB. [Suspect]
     Active Substance: ATEZOLIZUMAB
     Indication: NEOPLASM
     Route: 042
     Dates: start: 20180723

REACTIONS (2)
  - Chronic kidney disease [Not Recovered/Not Resolved]
  - Dehydration [Not Recovered/Not Resolved]

NARRATIVE: CASE EVENT DATE: 20181124
